FAERS Safety Report 17435960 (Version 1)
Quarter: 2020Q1

REPORT INFORMATION
  Report Type: Spontaneous
  Country: US (occurrence: US)
  Receive Date: 20200219
  Receipt Date: 20200219
  Transmission Date: 20200409
  Serious: Yes (Death)
  Sender: FDA-Public Use
  Company Number: US-PFIZER INC-2020074401

PATIENT
  Age: 48 Year
  Sex: Female

DRUGS (1)
  1. DAURISMO [Suspect]
     Active Substance: GLASDEGIB
     Dosage: UNK

REACTIONS (1)
  - Infection [Fatal]
